FAERS Safety Report 4519730-6 (Version None)
Quarter: 2004Q4

REPORT INFORMATION
  Report Type: 
  Country: None (occurrence: None)
  Receive Date: 20041203
  Receipt Date: 20041203
  Transmission Date: 20050328
  Serious: No
  Sender: FDA-Public Use
  Company Number: None

PATIENT
  Sex: Male
  Weight: 84.369 kg

DRUGS (2)
  1. RITUXAN [Suspect]
     Indication: LYMPHOMA
     Dosage: 750MG  QWK   INTRAVENOUS
     Route: 042
     Dates: start: 20041202, end: 20041203
  2. RITUXAN [Suspect]

REACTIONS (4)
  - INFUSION RELATED REACTION [None]
  - PAIN IN EXTREMITY [None]
  - PERIORBITAL OEDEMA [None]
  - VISION BLURRED [None]
